FAERS Safety Report 10049539 (Version 1)
Quarter: 2014Q2

REPORT INFORMATION
  Report Type: Spontaneous
  Country: GB (occurrence: GB)
  Receive Date: 20140401
  Receipt Date: 20140401
  Transmission Date: 20141212
  Serious: Yes (Life-Threatening, Hospitalization)
  Sender: FDA-Public Use
  Company Number: GB-BAUSCH-BL-2014-001480

PATIENT
  Age: 69 Year
  Sex: Male
  Weight: 68 kg

DRUGS (13)
  1. PREDNISOLONE [Suspect]
     Indication: B-CELL LYMPHOMA
     Dates: start: 20130917, end: 20131110
  2. CYCLOPHOSPHAMIDE [Suspect]
     Indication: B-CELL LYMPHOMA
     Dates: start: 20130917, end: 20131106
  3. DOXORUBICIN HYDROCHLORIDE [Suspect]
     Indication: B-CELL LYMPHOMA
     Dates: start: 20130917, end: 20131106
  4. RITUXIMAB [Suspect]
     Indication: B-CELL LYMPHOMA
     Dates: start: 20130916, end: 20131106
  5. VELCADE [Suspect]
     Indication: B-CELL LYMPHOMA
     Dates: start: 20131011, end: 20131113
  6. VINCRISTINE [Suspect]
     Indication: B-CELL LYMPHOMA
     Dates: start: 20130917, end: 20131106
  7. CHLORPHENAMINE [Concomitant]
     Indication: PRODUCT USED FOR UNKNOWN INDICATION
     Dates: start: 20130916, end: 20130916
  8. DOMPERIDONE [Concomitant]
     Indication: PRODUCT USED FOR UNKNOWN INDICATION
     Dates: start: 20131013, end: 20131015
  9. HYDROCORTISONE [Concomitant]
     Indication: PRODUCT USED FOR UNKNOWN INDICATION
     Dates: start: 20130916, end: 20130916
  10. LENOGRASTIM [Concomitant]
     Indication: PRODUCT USED FOR UNKNOWN INDICATION
     Dates: start: 20131018
  11. OMEPRAZOLE [Concomitant]
     Indication: PRODUCT USED FOR UNKNOWN INDICATION
     Dates: start: 20131011, end: 20131015
  12. ONDANSETRON [Concomitant]
     Indication: PRODUCT USED FOR UNKNOWN INDICATION
     Dates: start: 20131011, end: 20131018
  13. PARACETAMOL [Concomitant]
     Indication: PRODUCT USED FOR UNKNOWN INDICATION
     Route: 048
     Dates: start: 20130916, end: 20130916

REACTIONS (6)
  - Hypophosphataemia [Recovered/Resolved]
  - Anaemia [Not Recovered/Not Resolved]
  - Malaise [Recovered/Resolved]
  - Pyrexia [Recovered/Resolved]
  - Infection [Not Recovered/Not Resolved]
  - Neutropenic sepsis [Recovered/Resolved]
